FAERS Safety Report 8506492-0 (Version None)
Quarter: 2012Q3

REPORT INFORMATION
  Report Type: 
  Country: None (occurrence: None)
  Receive Date: 20120712
  Receipt Date: 20120705
  Transmission Date: 20120928
  Serious: Yes (Hospitalization, Disabling)
  Sender: FDA-Public Use
  Company Number: US-US-EMD SERONO, INC.-7057648

PATIENT
  Sex: Female
  Weight: 66 kg

DRUGS (1)
  1. REBIF [Suspect]
     Indication: MULTIPLE SCLEROSIS
     Route: 058
     Dates: start: 20030611

REACTIONS (7)
  - ABASIA [None]
  - INJECTION SITE HAEMATOMA [None]
  - INJECTION SITE CELLULITIS [None]
  - POOR PERIPHERAL CIRCULATION [None]
  - MUSCULAR WEAKNESS [None]
  - INJECTION SITE ERYTHEMA [None]
  - LIVER FUNCTION TEST ABNORMAL [None]
